FAERS Safety Report 6478395-7 (Version None)
Quarter: 2009Q4

REPORT INFORMATION
  Report Type: 
  Country: None (occurrence: None)
  Receive Date: 20091207
  Receipt Date: 20091123
  Transmission Date: 20100525
  Serious: Yes (Hospitalization, Other)
  Sender: FDA-Public Use
  Company Number: PHHY2009DE51590

PATIENT
  Sex: Female

DRUGS (4)
  1. LEPONEX [Suspect]
     Indication: PSYCHOTIC DISORDER
     Route: 048
  2. LEPONEX [Suspect]
     Dosage: 50 MG, BID
     Route: 048
     Dates: start: 20090101
  3. LEPONEX [Suspect]
     Dosage: 250 MG DAILY
     Route: 048
  4. DIAZEPAM [Concomitant]
     Dosage: 20 MG/DAY
     Route: 048

REACTIONS (6)
  - BODY TEMPERATURE INCREASED [None]
  - EOSINOPHIL COUNT DECREASED [None]
  - LYMPHOCYTE COUNT DECREASED [None]
  - NEUTROPHIL COUNT INCREASED [None]
  - PSYCHOTIC DISORDER [None]
  - WHITE BLOOD CELL COUNT INCREASED [None]
